FAERS Safety Report 6051203-4 (Version None)
Quarter: 2009Q1

REPORT INFORMATION
  Report Type: 
  Country: None (occurrence: None)
  Receive Date: 20090121
  Receipt Date: 20090105
  Transmission Date: 20090719
  Serious: Yes (Death)
  Sender: FDA-Public Use
  Company Number: 2008003005

PATIENT
  Age: 79 Year
  Sex: Male
  Weight: 65 kg

DRUGS (21)
  1. ERLOTINIB (ERLOTINIB) (TABLET) (ERLOTINIB) [Suspect]
     Indication: LUNG SQUAMOUS CELL CARCINOMA STAGE UNSPECIFIED
     Dosage: (150 MG, QD), ORAL
     Route: 048
     Dates: start: 20080813, end: 20081102
  2. URINORM (BENZBROMARONE) [Concomitant]
  3. DIART (AZOSEMIDE) [Concomitant]
  4. ALESION (EPINASTINE HYDROCHLORIDE) [Concomitant]
  5. KIPRES [Concomitant]
  6. MUCODYNE (CARBOCISTEINE) [Concomitant]
  7. ADOAIR (FLUTICASONE PROPIONATE) [Concomitant]
  8. PREDNISOLONE [Concomitant]
  9. INTAL [Concomitant]
  10. PROCATEROL HCL [Concomitant]
  11. LEVOFLOXACIN [Concomitant]
  12. BIOSMIN (LACTOBACILLUS BIFIDUS, LYOPHILIZED) [Concomitant]
  13. TANNALBIN (ALBUMIN TANNATE) [Concomitant]
  14. HYALEIN (HYALURONATE SODIUM) [Concomitant]
  15. RINDERON-A (BETNESOL-N) [Concomitant]
  16. TARIVID (OFLOXACIN) [Concomitant]
  17. MOBIC [Concomitant]
  18. PROTECADIN [Concomitant]
  19. NAUZELIN (DOMPERIDONE) [Concomitant]
  20. LENDORM [Concomitant]
  21. SULTANOL (SALBUTAMOL) [Concomitant]

REACTIONS (5)
  - CARDIO-RESPIRATORY ARREST [None]
  - DIARRHOEA [None]
  - HAEMOPTYSIS [None]
  - RASH PAPULAR [None]
  - SKIN ULCER [None]
